FAERS Safety Report 8226985-3 (Version None)
Quarter: 2012Q1

REPORT INFORMATION
  Report Type: 
  Country: None (occurrence: None)
  Receive Date: 20120322
  Receipt Date: 20120312
  Transmission Date: 20120608
  Serious: Yes (Other)
  Sender: FDA-Public Use
  Company Number: US-JNJFOC-20120306612

PATIENT
  Sex: Female

DRUGS (4)
  1. METHOTREXATE [Concomitant]
     Route: 065
  2. SLEEP MEDICATIONS (NOS) [Concomitant]
     Route: 065
  3. PREDNISONE TAB [Concomitant]
     Route: 048
  4. REMICADE [Suspect]
     Indication: RHEUMATOID ARTHRITIS
     Route: 042

REACTIONS (5)
  - SWELLING FACE [None]
  - ANTIPHOSPHOLIPID SYNDROME [None]
  - URTICARIA [None]
  - ADVERSE EVENT [None]
  - DRUG HYPERSENSITIVITY [None]
